FAERS Safety Report 9778280 (Version 1)
Quarter: 2013Q4

REPORT INFORMATION
  Report Type: Spontaneous
  Country: US (occurrence: US)
  Receive Date: 20131223
  Receipt Date: 20131223
  Transmission Date: 20140711
  Serious: Yes (Hospitalization)
  Sender: FDA-Public Use
  Company Number: US-BAYER-2013-156694

PATIENT
  Age: 37 Year
  Sex: Female
  Weight: 80.27 kg

DRUGS (5)
  1. YASMIN [Suspect]
     Indication: MENSTRUAL CYCLE MANAGEMENT
  2. DEPAKOTE [Concomitant]
     Dosage: 325 MG, UNK
  3. TRAZODONE [Concomitant]
     Dosage: 100 MG, UNK
  4. SYNTHROID [Concomitant]
     Dosage: 0.025 MG, UNK
  5. LORTAB [Concomitant]
     Dosage: 7.5 MG, UNK

REACTIONS (1)
  - Deep vein thrombosis [Recovered/Resolved]
